FAERS Safety Report 7683180-4 (Version None)
Quarter: 2011Q3

REPORT INFORMATION
  Report Type: 
  Country: None (occurrence: None)
  Receive Date: 20110815
  Receipt Date: 20110802
  Transmission Date: 20111222
  Serious: Yes (Other)
  Sender: FDA-Public Use
  Company Number: US-UCBSA-038316

PATIENT
  Sex: Female

DRUGS (1)
  1. CIMZIA [Suspect]
     Indication: CROHN'S DISEASE
     Route: 058
     Dates: start: 20110622

REACTIONS (7)
  - VIITH NERVE PARALYSIS [None]
  - EAR INFECTION [None]
  - NECK PAIN [None]
  - TENDON DISORDER [None]
  - MUSCLE SPASMS [None]
  - OCULAR HYPERAEMIA [None]
  - BACK PAIN [None]
